FAERS Safety Report 5812769-X (Version None)
Quarter: 2008Q3

REPORT INFORMATION
  Report Type: 
  Country: None (occurrence: None)
  Receive Date: 20080714
  Receipt Date: 20080714
  Transmission Date: 20090109
  Serious: Yes (Hospitalization)
  Sender: FDA-Public Use
  Company Number: None

PATIENT
  Sex: Male
  Weight: 57 kg

DRUGS (6)
  1. DOXORUBICIN HCL [Suspect]
     Dosage: 103 MG
     Dates: end: 20070116
  2. METHOTREXATE [Suspect]
     Dosage: 13680 MG
     Dates: end: 20070115
  3. PREDNISONE TAB [Suspect]
     Dosage: 585 MG
     Dates: end: 20070122
  4. RITUXIMAB (MOAB C2B8 ANTI CD20, CHIMERIC) [Suspect]
     Dosage: 675 MG
     Dates: end: 20061016
  5. VINCRISTINE SULFATE [Suspect]
     Dosage: 2 MG
     Dates: end: 20070115
  6. CYCLOPHOSPHAMIDE [Suspect]
     Dosage: 1710 MG
     Dates: end: 20070117

REACTIONS (9)
  - EAR PAIN [None]
  - HAEMOGLOBIN DECREASED [None]
  - HYPOPHAGIA [None]
  - NEUTROPHIL COUNT DECREASED [None]
  - OTITIS MEDIA [None]
  - PAIN [None]
  - PLATELET COUNT DECREASED [None]
  - STOMATITIS [None]
  - WHITE BLOOD CELL COUNT DECREASED [None]
